FAERS Safety Report 9416733 (Version 2)
Quarter: 2013Q3

REPORT INFORMATION
  Report Type: Spontaneous
  Country: FR (occurrence: FR)
  Receive Date: 20130724
  Receipt Date: 20130829
  Transmission Date: 20140515
  Serious: Yes (Hospitalization)
  Sender: FDA-Public Use
  Company Number: FR-ROCHE-1252224

PATIENT
  Age: 62 Year
  Sex: Female

DRUGS (4)
  1. AVASTIN [Suspect]
     Indication: OVARIAN CANCER RECURRENT
     Dosage: 25 MG/ML
     Route: 041
     Dates: start: 20120903, end: 20130516
  2. MOBIC [Suspect]
     Indication: ARTHRALGIA
     Route: 065
  3. PACLITAXEL [Concomitant]
     Route: 065
     Dates: start: 20120903
  4. CARBOPLATIN [Concomitant]
     Route: 065
     Dates: start: 20120903

REACTIONS (1)
  - Rectal haemorrhage [Recovered/Resolved]
